FAERS Safety Report 4854468-7 (Version None)
Quarter: 2005Q4

REPORT INFORMATION
  Report Type: 
  Country: None (occurrence: None)
  Receive Date: 20051213
  Receipt Date: 20051130
  Transmission Date: 20060501
  Serious: Yes (Hospitalization)
  Sender: FDA-Public Use
  Company Number: 2005163180

PATIENT
  Age: 58 Year
  Sex: Female

DRUGS (7)
  1. AMLODIPINE [Suspect]
     Indication: LABILE HYPERTENSION
     Dosage: ORAL
     Route: 048
     Dates: start: 20020611, end: 20020701
  2. MEXILETINE HYDROCHLORIDE (MEXILETINE HYDROCHLORIDE) [Suspect]
     Indication: LABILE HYPERTENSION
     Dosage: ORAL
     Route: 048
     Dates: start: 20020611, end: 20020701
  3. IMIDAPRIL HYDROCHLORIDE (IMIDAPRIL HYDROCHLORIDE) [Suspect]
     Indication: LABILE HYPERTENSION
     Dosage: ORAL
     Route: 048
     Dates: start: 20020611, end: 20020701
  4. ETIZOLAM [Concomitant]
  5. TOFISOPAM [Concomitant]
  6. SERRAPEPTASE [Concomitant]
  7. REBAMIPIDE [Concomitant]

REACTIONS (3)
  - DRUG HYPERSENSITIVITY [None]
  - PALPITATIONS [None]
  - SKIN TEST POSITIVE [None]
